FAERS Safety Report 20180066 (Version 12)
Quarter: 2023Q2

REPORT INFORMATION
  Report Type: Report from Study
  Country: CN (occurrence: CN)
  Receive Date: 20211214
  Receipt Date: 20230620
  Transmission Date: 20230721
  Serious: Yes (Hospitalization, Other)
  Sender: FDA-Public Use
  Company Number: CN-TAKEDA-2021TUS074476

PATIENT
  Age: 68 Year
  Sex: Female
  Weight: 60 kg

DRUGS (8)
  1. IXAZOMIB [Suspect]
     Active Substance: IXAZOMIB
     Indication: Plasma cell myeloma
     Dosage: 3 MILLIGRAM, 1/WEEK
     Route: 048
     Dates: start: 20211004, end: 20211018
  2. IXAZOMIB [Suspect]
     Active Substance: IXAZOMIB
     Dosage: 3 MILLIGRAM, 1/WEEK
     Route: 048
     Dates: start: 20211019, end: 20211115
  3. IXAZOMIB [Suspect]
     Active Substance: IXAZOMIB
     Dosage: 3 MILLIGRAM, 1/WEEK
     Route: 048
     Dates: start: 20211207, end: 20211221
  4. DEXAMETHASONE ACETATE [Concomitant]
     Active Substance: DEXAMETHASONE ACETATE
     Indication: Plasma cell myeloma
     Dosage: 4.5 MILLIGRAM, BID
     Route: 048
  5. CALCIUM CARBONATE\ERGOCALCIFEROL\RETINOL [Concomitant]
     Active Substance: CALCIUM CARBONATE\ERGOCALCIFEROL\RETINOL
     Indication: Osteoporosis
     Dosage: 0.25 MICROGRAM, QD
     Route: 048
     Dates: start: 20211012
  6. COBAMAMIDE [Concomitant]
     Active Substance: COBAMAMIDE
     Indication: Anaemia
     Dosage: 0.5 MILLIGRAM, TID
     Route: 048
     Dates: start: 20211012
  7. CALCIUM ACETATE [Concomitant]
     Active Substance: CALCIUM ACETATE
     Indication: Osteoporosis
     Dosage: 0.6 GRAM, QD
     Route: 048
     Dates: start: 20211012
  8. GLUCOSAMINE HYDROCHLORIDE [Concomitant]
     Active Substance: GLUCOSAMINE HYDROCHLORIDE
     Indication: Osteoarthritis
     Dosage: 0.75 GRAM, BID
     Route: 048
     Dates: start: 20211012

REACTIONS (3)
  - Full blood count decreased [Recovering/Resolving]
  - Overdose [Recovering/Resolving]
  - Off label use [Unknown]

NARRATIVE: CASE EVENT DATE: 20211019
